FAERS Safety Report 5025339-0 (Version None)
Quarter: 2006Q2

REPORT INFORMATION
  Report Type: 
  Country: None (occurrence: None)
  Receive Date: 20060426
  Receipt Date: 20060113
  Transmission Date: 20061013
  Serious: Yes (Other)
  Sender: FDA-Public Use
  Company Number: 2006008835

PATIENT
  Age: 59 Year
  Sex: Male
  Weight: 107.0489 kg

DRUGS (5)
  1. LYRICA (PREGABILIN) [Suspect]
     Indication: NEUROPATHY
     Dosage: 150 MG (75 MG 2 IN 1 D) ORAL
     Route: 048
     Dates: start: 20050101
  2. NEURONTIN [Suspect]
     Indication: NEUROPATHY
     Dosage: 900 MG (300 MG 3 IN 1 D)
     Route: 065
  3. METHADONE HCL [Concomitant]
  4. AMITRIPTYLINE HCL [Concomitant]
  5. LOVASTATIN [Concomitant]

REACTIONS (3)
  - AMNESIA [None]
  - DRUG INEFFECTIVE [None]
  - NEUROPATHY [None]
